FAERS Safety Report 5040735-3 (Version None)
Quarter: 2006Q3

REPORT INFORMATION
  Report Type: 
  Country: None (occurrence: None)
  Receive Date: 20060703
  Receipt Date: 20050812
  Transmission Date: 20061208
  Serious: Yes (Other)
  Sender: FDA-Public Use
  Company Number: PHNR2005AU01761

PATIENT
  Sex: Male

DRUGS (2)
  1. GLUCOSAMINE [Concomitant]
  2. VOLTAREN [Suspect]
     Indication: ARTHRALGIA
     Dosage: 2-3 X 25 MG/DAY
     Route: 048

REACTIONS (3)
  - MOUTH ULCERATION [None]
  - PHARYNGEAL ULCERATION [None]
  - TONGUE ULCERATION [None]
